FAERS Safety Report 7706700-X (Version None)
Quarter: 2011Q3

REPORT INFORMATION
  Report Type: 
  Country: None (occurrence: None)
  Receive Date: 20110824
  Receipt Date: 20110822
  Transmission Date: 20111222
  Serious: Yes (Other)
  Sender: FDA-Public Use
  Company Number: JP-PFIZER INC-2011149056

PATIENT
  Age: 75 Year
  Sex: Male

DRUGS (2)
  1. ZOLPIDEM [Suspect]
     Dosage: UNK
     Route: 048
     Dates: start: 20110627
  2. VFEND [Suspect]
     Dosage: 200 MG, 2X/DAY
     Route: 048
     Dates: start: 20110606

REACTIONS (2)
  - SUDDEN ONSET OF SLEEP [None]
  - DRUG INTERACTION [None]
